FAERS Safety Report 5083421-6 (Version None)
Quarter: 2006Q3

REPORT INFORMATION
  Report Type: 
  Country: None (occurrence: None)
  Receive Date: 20060818
  Receipt Date: 20060224
  Transmission Date: 20061208
  Serious: Yes (Other)
  Sender: FDA-Public Use
  Company Number: PHEH2006US02646

PATIENT
  Age: 62 Year
  Sex: Female

DRUGS (7)
  1. ZOMETA [Suspect]
     Indication: BREAST CANCER
     Dosage: 4MG PRN
     Dates: start: 20030305, end: 20050118
  2. ZOMETA [Suspect]
     Dosage: 4 MG QMO
     Dates: start: 20020508, end: 20030108
  3. AREDIA [Suspect]
     Indication: BREAST CANCER
     Dosage: 90MG QMO
     Dates: start: 20010705, end: 20020109
  4. AREDIA [Suspect]
     Dosage: 90MG  ONCE
     Dates: start: 20051213, end: 20051213
  5. ADRIAMYCIN PFS [Concomitant]
     Indication: BREAST CANCER
     Dosage: 102MG UNK
     Dates: start: 20010329, end: 20010420
  6. CYTOXAN [Concomitant]
     Indication: BREAST CANCER
     Dosage: 1020MG UNK
     Dates: start: 20010329, end: 20010420
  7. TAXOL + CARBOPLATIN [Concomitant]
     Indication: BREAST CANCER
     Dosage: 115MG/210MG UNK
     Dates: start: 20060110

REACTIONS (12)
  - BONE DEBRIDEMENT [None]
  - BONE DISORDER [None]
  - DENTAL TREATMENT [None]
  - GINGIVAL INFECTION [None]
  - GINGIVAL SWELLING [None]
  - GINGIVITIS [None]
  - LOOSE TOOTH [None]
  - OSTEOMYELITIS [None]
  - OSTEONECROSIS [None]
  - PAIN [None]
  - SOFT TISSUE INFECTION [None]
  - TOOTH EXTRACTION [None]
